FAERS Safety Report 16566823 (Version 2)
Quarter: 2019Q3

REPORT INFORMATION
  Report Type: Report from Study
  Country: US (occurrence: US)
  Receive Date: 20190712
  Receipt Date: 20190719
  Transmission Date: 20191004
  Serious: Yes (Hospitalization)
  Sender: FDA-Public Use
  Company Number: US-ACTELION-A-US2019-192854

PATIENT
  Sex: Female
  Weight: 9.98 kg

DRUGS (8)
  1. DIURIL [Concomitant]
     Active Substance: CHLOROTHIAZIDE
     Dosage: 100 MG, QD
     Route: 048
  2. ALBUTEROL HFA [Concomitant]
     Active Substance: ALBUTEROL SULFATE
     Dosage: 90 MCG/ACTUATION INHALER, 2 PUFFS Q4H, PRN
     Route: 055
  3. ZANTAC [Concomitant]
     Active Substance: RANITIDINE HYDROCHLORIDE
     Dosage: 6 MG/KG/DAY X 10.1KG, BID VIA J-TUBE
  4. TRACLEER [Suspect]
     Active Substance: BOSENTAN
     Indication: PULMONARY ARTERIAL HYPERTENSION
     Dosage: 32 MG, BID
     Route: 048
  5. TRACLEER [Suspect]
     Active Substance: BOSENTAN
     Dosage: 18 MG, BID
     Route: 048
     Dates: start: 20190315, end: 20190710
  6. REVATIO [Suspect]
     Active Substance: SILDENAFIL CITRATE
     Indication: PULMONARY HYPERTENSION
     Dosage: 10 MG, TID VIA GJ TUBE
     Route: 065
  7. AMOXICILLIN. [Concomitant]
     Active Substance: AMOXICILLIN
     Dosage: 90 NG/KG/DAY X 10KG, TID
     Route: 048
  8. LEVOTHYROXINE. [Concomitant]
     Active Substance: LEVOTHYROXINE
     Dosage: 25 MCG, QD
     Route: 048

REACTIONS (4)
  - Overdose [Unknown]
  - Incorrect dose administered [Unknown]
  - Liver function test increased [Recovering/Resolving]
  - Device dislocation [Unknown]
